FAERS Safety Report 18873082 (Version 2)
Quarter: 2021Q1

REPORT INFORMATION
  Report Type: Report from Study
  Country: JP (occurrence: JP)
  Receive Date: 20210210
  Receipt Date: 20210210
  Transmission Date: 20210420
  Serious: Yes (Hospitalization, Other)
  Sender: FDA-Public Use
  Company Number: JP-009507513-1909JPN002982J

PATIENT
  Age: 66 Year
  Sex: Male
  Weight: 66 kg

DRUGS (3)
  1. PEMBROLIZUMAB. [Suspect]
     Active Substance: PEMBROLIZUMAB
     Indication: TRANSITIONAL CELL CANCER OF THE RENAL PELVIS AND URETER
     Dosage: 200 MILLIGRAM, Q3W
     Route: 041
     Dates: start: 20180904
  2. PEMBROLIZUMAB. [Suspect]
     Active Substance: PEMBROLIZUMAB
     Indication: BLADDER CANCER
     Dosage: 200 MILLIGRAM, Q3W
     Route: 041
     Dates: start: 20180316, end: 20180720
  3. PINORUBIN [Concomitant]
     Active Substance: PIRARUBICIN
     Indication: PROPHYLAXIS
     Dosage: 30 MILLIGRAM, QM
     Route: 043
     Dates: start: 20180508, end: 20190315

REACTIONS (6)
  - Hypopituitarism [Recovering/Resolving]
  - Rash [Recovering/Resolving]
  - Off label use [Unknown]
  - Hypotension [Recovering/Resolving]
  - Type 1 diabetes mellitus [Not Recovered/Not Resolved]
  - Adrenal insufficiency [Recovering/Resolving]

NARRATIVE: CASE EVENT DATE: 20180619
